FAERS Safety Report 11367748 (Version 1)
Quarter: 2015Q3

REPORT INFORMATION
  Report Type: Spontaneous
  Country: US (occurrence: None)
  Receive Date: 20150810
  Receipt Date: 20150810
  Transmission Date: 20151125
  Serious: Yes (Other)
  Sender: FDA-Public Use
  Company Number: None

PATIENT
  Age: 66 Year
  Sex: Male

DRUGS (3)
  1. BMX SOLUTION [Concomitant]
  2. PROLIA [Suspect]
     Active Substance: DENOSUMAB
     Indication: OSTEOPOROSIS
     Dosage: 1 ML EVERY 6 MONTHS  SUBCUTANEOUS
     Route: 058
     Dates: start: 20150408, end: 20150408
  3. ANTIGLYCEMICS [Concomitant]

REACTIONS (4)
  - Sensory disturbance [None]
  - Tongue disorder [None]
  - Arthralgia [None]
  - Pain [None]

NARRATIVE: CASE EVENT DATE: 20150410
